FAERS Safety Report 15495862 (Version 2)
Quarter: 2019Q1

REPORT INFORMATION
  Report Type: Spontaneous
  Country: US (occurrence: US)
  Receive Date: 20181014
  Receipt Date: 20190204
  Transmission Date: 20190417
  Serious: No
  Sender: FDA-Public Use
  Company Number: US-JNJFOC-20180936807

PATIENT
  Age: 59 Year
  Sex: Female
  Weight: 94.8 kg

DRUGS (1)
  1. SIMPONI ARIA [Suspect]
     Active Substance: GOLIMUMAB
     Indication: PSORIATIC ARTHROPATHY
     Route: 042
     Dates: start: 20180718

REACTIONS (1)
  - Product prescribing error [Unknown]

NARRATIVE: CASE EVENT DATE: 20180926
